FAERS Safety Report 7638948-7 (Version None)
Quarter: 2011Q3

REPORT INFORMATION
  Report Type: 
  Country: None (occurrence: None)
  Receive Date: 20110727
  Receipt Date: 20110719
  Transmission Date: 20111222
  Serious: Yes (Other)
  Sender: FDA-Public Use
  Company Number: AU-BAXTER-2011BH024301

PATIENT
  Age: 48 Year
  Sex: Male

DRUGS (3)
  1. OXALIPLATIN [Suspect]
     Indication: NEOPLASM
     Route: 042
     Dates: start: 20110714
  2. 5% DEXTROSE INJECTION [Suspect]
     Indication: MEDICATION DILUTION
     Route: 042
     Dates: start: 20110714
  3. WATER FOR INJECTION [Suspect]
     Indication: MEDICATION DILUTION
     Route: 042
     Dates: start: 20110714

REACTIONS (3)
  - DYSPNOEA [None]
  - RASH [None]
  - CHEST DISCOMFORT [None]
